FAERS Safety Report 16037390 (Version 1)
Quarter: 2019Q1

REPORT INFORMATION
  Report Type: Spontaneous
  Country: GB (occurrence: GB)
  Receive Date: 20190305
  Receipt Date: 20190305
  Transmission Date: 20190418
  Serious: Yes (Death)
  Sender: FDA-Public Use
  Company Number: GB-TEVA-2019-GB-1017993

PATIENT
  Age: 82 Year
  Sex: Male

DRUGS (2)
  1. SIMVASTATIN. [Suspect]
     Active Substance: SIMVASTATIN
     Route: 065
  2. DANAZOL. [Suspect]
     Active Substance: DANAZOL
     Route: 065

REACTIONS (2)
  - Contraindicated product administered [Fatal]
  - Death [Fatal]
